FAERS Safety Report 8940417 (Version 1)
Quarter: 2012Q4

REPORT INFORMATION
  Report Type: 
  Country: US (occurrence: US)
  Receive Date: 20121130
  Receipt Date: 20121130
  Transmission Date: 20130627
  Serious: Yes (Hospitalization, Other)
  Sender: FDA-Public Use
  Company Number: US-PFIZER INC-2012300847

PATIENT
  Sex: Female
  Weight: 68.03 kg

DRUGS (3)
  1. LIPITOR [Suspect]
     Indication: HIGH CHOLESTEROL
     Dosage: 10 mg, daily at night
  2. NEXIUM [Concomitant]
     Indication: GASTROESOPHAGEAL REFLUX DISEASE
     Dosage: 20 mg, daily
  3. ACETYLSALICYLIC ACID [Concomitant]
     Dosage: UNK daily

REACTIONS (3)
  - Hip fracture [Unknown]
  - Fall [Unknown]
  - Cataract [Unknown]
